FAERS Safety Report 4433231-5 (Version None)
Quarter: 2004Q3

REPORT INFORMATION
  Report Type: 
  Country: None (occurrence: None)
  Receive Date: 20040823
  Receipt Date: 20040806
  Transmission Date: 20050211
  Serious: Yes (Hospitalization)
  Sender: FDA-Public Use
  Company Number: F01200402373

PATIENT
  Age: 71 Year
  Sex: Male

DRUGS (4)
  1. OXALIPLATIN [Suspect]
     Indication: COLORECTAL CANCER METASTATIC
     Dosage: 130 MG/M2 Q3W, INTRAVENOUS NOS
     Route: 042
     Dates: start: 20040706, end: 20040706
  2. (CAPECITABINE) - FORM : UNKNOWN - 1000 MG/M2 [Suspect]
     Dosage: 1000 MG/M2 BID ORAL
     Route: 048
     Dates: start: 20040706
  3. METFORMINE (METFORMIN) [Concomitant]
  4. RAMIPRIL [Concomitant]

REACTIONS (2)
  - GENERAL PHYSICAL HEALTH DETERIORATION [None]
  - WEIGHT DECREASED [None]
